FAERS Safety Report 7815250-1 (Version None)
Quarter: 2011Q4

REPORT INFORMATION
  Report Type: 
  Country: None (occurrence: None)
  Receive Date: 20111014
  Receipt Date: 20111003
  Transmission Date: 20120403
  Serious: Yes (Other)
  Sender: FDA-Public Use
  Company Number: NO-BAXTER-2011BH032140

PATIENT

DRUGS (11)
  1. BLEOMYCIN SULFATE [Suspect]
     Indication: HODGKIN'S DISEASE
     Route: 042
  2. PROCARBAZINE HYDROCHLORIDE [Suspect]
     Indication: HODGKIN'S DISEASE
     Route: 048
  3. PREDNISOLONE [Suspect]
     Indication: HODGKIN'S DISEASE
     Route: 048
  4. ETOPOSIDE [Suspect]
     Indication: HODGKIN'S DISEASE
     Route: 042
  5. ETOPOSIDE [Suspect]
     Route: 042
  6. NEUPOGEN [Suspect]
     Indication: HODGKIN'S DISEASE
     Route: 065
  7. CYCLOPHOSPHAMIDE [Suspect]
     Indication: HODGKIN'S DISEASE
     Route: 042
  8. VINCRISTINE SULFATE [Suspect]
     Indication: HODGKIN'S DISEASE
     Route: 042
  9. DOXORUBICIN HCL [Suspect]
     Route: 042
  10. CYCLOPHOSPHAMIDE [Suspect]
     Route: 042
  11. DOXORUBICIN HCL [Suspect]
     Indication: HODGKIN'S DISEASE
     Route: 042

REACTIONS (1)
  - HERPES ZOSTER [None]
